FAERS Safety Report 15983614 (Version 1)
Quarter: 2019Q1

REPORT INFORMATION
  Report Type: Spontaneous
  Country: IT (occurrence: IT)
  Receive Date: 20190220
  Receipt Date: 20190220
  Transmission Date: 20190418
  Serious: Yes (Other)
  Sender: FDA-Public Use
  Company Number: IT-AUROBINDO-AUR-APL-2019-008391

PATIENT

DRUGS (4)
  1. OXALIPLATIN. [Suspect]
     Active Substance: OXALIPLATIN
     Indication: ADENOCARCINOMA OF COLON
     Dosage: 130 MILLIGRAM, CYCLICAL
     Route: 042
     Dates: start: 20181128, end: 20181220
  2. VECTIBIX [Suspect]
     Active Substance: PANITUMUMAB
     Indication: ADENOCARCINOMA OF COLON
     Dosage: 324 MILLIGRAM, CYCLICAL
     Route: 042
     Dates: start: 20181128, end: 20181220
  3. DOXIFLURIDINE [Suspect]
     Active Substance: DOXIFLURIDINE
     Indication: ADENOCARCINOMA OF COLON
     Dosage: 60 MILLIGRAM, CYCLICAL
     Route: 042
     Dates: start: 20181128, end: 20181220
  4. FLUOROURACIL. [Suspect]
     Active Substance: FLUOROURACIL
     Indication: ADENOCARCINOMA OF COLON
     Dosage: 3500 MILLIGRAM, CYCLICAL
     Route: 040
     Dates: start: 20181128, end: 20181220

REACTIONS (1)
  - Skin toxicity [Recovering/Resolving]

NARRATIVE: CASE EVENT DATE: 20181220
